FAERS Safety Report 8465834-5 (Version None)
Quarter: 2012Q2

REPORT INFORMATION
  Report Type: 
  Country: None (occurrence: None)
  Receive Date: 20120626
  Receipt Date: 20120618
  Transmission Date: 20120825
  Serious: No
  Sender: FDA-Public Use
  Company Number: BR-ABBOTT-12P-020-0917351-00

PATIENT
  Sex: Female
  Weight: 65 kg

DRUGS (12)
  1. LEVOTHYROXINE [Concomitant]
     Indication: THYROID DISORDER
     Dosage: 1 TABLET IN THE MORNING
     Route: 048
  2. HUMIRA [Suspect]
     Indication: RHEUMATOID ARTHRITIS
     Route: 058
     Dates: start: 20101221, end: 20110901
  3. HUMIRA [Suspect]
     Dates: start: 20120501
  4. AMLODIPINE [Concomitant]
     Indication: HYPERTENSION
     Dosage: 1 TABLET IN THE MORNING
     Route: 048
  5. ETORICOXIB [Concomitant]
     Indication: RHEUMATOID ARTHRITIS
     Dosage: 1 TABLET IN THE MORNING
     Route: 048
     Dates: start: 20030101
  6. SERTRALINE HYDROCHLORIDE [Concomitant]
     Indication: DEPRESSION
     Dosage: 1 TABLET IN THE MORNING
     Route: 048
  7. ATENOLOL [Concomitant]
     Indication: HYPERTENSION
     Route: 048
  8. AMYTRIL [Concomitant]
     Indication: DEPRESSION
     Dosage: 1 TABLET IN THE EVENING
     Route: 048
     Dates: start: 20010101
  9. CAPTOPRIL [Concomitant]
     Indication: HYPERTENSION
     Dosage: 1 TABLET IN THE EVENING
     Route: 048
  10. METHOTREXATE [Concomitant]
     Indication: RHEUMATOID ARTHRITIS
     Route: 048
     Dates: start: 20030101
  11. PROPRANOLOL [Concomitant]
     Indication: HYPERTENSION
     Route: 048
  12. METHOTREXATE [Concomitant]
     Indication: ANTIINFLAMMATORY THERAPY
     Route: 048

REACTIONS (8)
  - WEIGHT INCREASED [None]
  - PYREXIA [None]
  - TRISMUS [None]
  - SWELLING FACE [None]
  - TRIGEMINAL NERVE DISORDER [None]
  - AMNESIA [None]
  - EAR PAIN [None]
  - FIBROMYALGIA [None]
